FAERS Safety Report 8070549-1 (Version None)
Quarter: 2012Q1

REPORT INFORMATION
  Report Type: 
  Country: None (occurrence: None)
  Receive Date: 20120125
  Receipt Date: 20120113
  Transmission Date: 20120608
  Serious: Yes (Other)
  Sender: FDA-Public Use
  Company Number: DE-BRISTOL-MYERS SQUIBB COMPANY-16358186

PATIENT
  Age: 10 Year
  Sex: Female

DRUGS (1)
  1. LYSODREN [Suspect]
     Indication: ADRENOCORTICAL CARCINOMA

REACTIONS (3)
  - ELECTROCARDIOGRAM QT PROLONGED [None]
  - THROMBOSIS [None]
  - VERTIGO [None]
